FAERS Safety Report 7554995-8 (Version None)
Quarter: 2011Q2

REPORT INFORMATION
  Report Type: 
  Country: None (occurrence: None)
  Receive Date: 20110617
  Receipt Date: 20110609
  Transmission Date: 20111010
  Serious: Yes (Hospitalization, Other)
  Sender: FDA-Public Use
  Company Number: CA-PFIZER INC-2011063473

PATIENT
  Age: 48 Year
  Sex: Male
  Weight: 84 kg

DRUGS (6)
  1. MULTI-VITAMINS [Concomitant]
     Dosage: 2 TABLETS, 1X/DAY
     Dates: end: 20101118
  2. CIPROFLOXACIN [Suspect]
     Indication: ORCHITIS
     Dosage: 500 MG, UNK
     Route: 048
     Dates: start: 20101117, end: 20101118
  3. NAPROXEN [Suspect]
     Indication: TESTICULAR PAIN
     Dosage: 250 MG, 2-3 TABLETS, 1X/DAY
     Route: 048
     Dates: start: 20101103, end: 20101118
  4. CELEBREX [Suspect]
     Indication: TESTICULAR PAIN
     Dosage: 200 MG, 1-2 TABLETS, 1X/DAY
     Dates: start: 20101103, end: 20101118
  5. IBUPROFEN (ADVIL) [Suspect]
     Indication: TESTICULAR PAIN
     Dosage: 200 MG 2-3 TABLETS, 1X/DAY
     Dates: start: 20101103, end: 20101118
  6. ZOPICLONE [Concomitant]
     Dosage: 7.5 MG, HALF TABLET, 1X/DAY AT BEDTIME
     Dates: end: 20101118

REACTIONS (6)
  - TESTICULAR PAIN [None]
  - RENAL FAILURE ACUTE [None]
  - BLOOD CREATININE INCREASED [None]
  - CHEST PAIN [None]
  - RENAL TUBULAR NECROSIS [None]
  - OLIGURIA [None]
